FAERS Safety Report 14939482 (Version 2)
Quarter: 2019Q3

REPORT INFORMATION
  Report Type: Spontaneous
  Country: US (occurrence: US)
  Receive Date: 20180525
  Receipt Date: 20190814
  Transmission Date: 20191004
  Serious: Yes (Hospitalization, Other)
  Sender: FDA-Public Use
  Company Number: US-BIOGEN-2018BI00581364

PATIENT
  Age: 49 Year
  Sex: Female

DRUGS (1)
  1. ZINBRYTA [Suspect]
     Active Substance: DACLIZUMAB
     Indication: MULTIPLE SCLEROSIS
     Route: 050
     Dates: start: 201702, end: 201802

REACTIONS (13)
  - Renal failure [Unknown]
  - Ear infection [Unknown]
  - Tachycardia [Unknown]
  - Palpitations [Recovered/Resolved]
  - Encephalitis [Not Recovered/Not Resolved]
  - Respiratory failure [Unknown]
  - Deep vein thrombosis [Unknown]
  - Decubitus ulcer [Unknown]
  - Nausea [Recovered/Resolved]
  - Tachypnoea [Unknown]
  - Fungal skin infection [Unknown]
  - Anaemia [Unknown]
  - Decreased appetite [Unknown]

NARRATIVE: CASE EVENT DATE: 201702
